FAERS Safety Report 19946440 (Version 2)
Quarter: 2021Q4

REPORT INFORMATION
  Report Type: Report from Study
  Country: FR (occurrence: FR)
  Receive Date: 20211012
  Receipt Date: 20211020
  Transmission Date: 20220303
  Serious: Yes (Death)
  Sender: FDA-Public Use
  Company Number: FR-PFIZER INC-202101352512

PATIENT
  Weight: 47 kg

DRUGS (5)
  1. GEMTUZUMAB OZOGAMICIN [Suspect]
     Active Substance: GEMTUZUMAB OZOGAMICIN
     Dosage: 4.4 MG
     Route: 042
     Dates: start: 20201116
  2. MITOXANTRONE HYDROCHLORIDE [Suspect]
     Active Substance: MITOXANTRONE HYDROCHLORIDE
     Dosage: 12 MG/M2, 1X/DAY
     Route: 042
     Dates: start: 20201113, end: 20201116
  3. CEFAZOLIN [Concomitant]
     Active Substance: CEFAZOLIN
     Indication: Sepsis
     Dosage: 2 G, 3X/DAY
     Dates: start: 20201204, end: 20201207
  4. MORPHINE [Concomitant]
     Active Substance: MORPHINE
     Indication: Anaesthesia
     Dosage: 5 MG, CYCLIC
     Dates: start: 20201128, end: 20201206
  5. KETAMINE [Concomitant]
     Active Substance: KETAMINE
     Indication: Anaesthesia
     Dosage: 20 MG, 2X/DAY
     Dates: start: 20201205, end: 20201206

REACTIONS (2)
  - Aplasia [Fatal]
  - Perineal cellulitis [Fatal]

NARRATIVE: CASE EVENT DATE: 20201204
